FAERS Safety Report 21039236 (Version 1)
Quarter: 2022Q3

REPORT INFORMATION
  Report Type: Spontaneous
  Country: GB (occurrence: GB)
  Receive Date: 20220704
  Receipt Date: 20220704
  Transmission Date: 20221026
  Serious: Yes (Other)
  Sender: FDA-Public Use
  Company Number: None

PATIENT
  Age: 54 Year
  Sex: Female

DRUGS (1)
  1. PRAMIPEXOLE [Suspect]
     Active Substance: PRAMIPEXOLE
     Indication: Restless legs syndrome
     Dosage: UNKNOWN
     Route: 065
     Dates: end: 201804

REACTIONS (2)
  - Medication error [Unknown]
  - Dependence [Recovered/Resolved]

NARRATIVE: CASE EVENT DATE: 20180101
